APPROVED DRUG PRODUCT: XENAZINE
Active Ingredient: TETRABENAZINE
Strength: 12.5MG
Dosage Form/Route: TABLET;ORAL
Application: N021894 | Product #001 | TE Code: AB
Applicant: BAUSCH HEALTH US LLC
Approved: Aug 15, 2008 | RLD: Yes | RS: No | Type: RX